FAERS Safety Report 8364420-5 (Version None)
Quarter: 2012Q2

REPORT INFORMATION
  Report Type: 
  Country: None (occurrence: None)
  Receive Date: 20120516
  Receipt Date: 20120507
  Transmission Date: 20120825
  Serious: Yes (Hospitalization)
  Sender: FDA-Public Use
  Company Number: JP-FRI-1000030013

PATIENT
  Sex: Female
  Weight: 38 kg

DRUGS (9)
  1. AMLODIPINE [Concomitant]
     Dosage: 5 MG
     Route: 048
  2. CANDESARTAN CILEXETIL [Concomitant]
     Dosage: 4 MG
     Route: 048
  3. LAC-B [Concomitant]
     Dosage: 3 G
     Route: 048
  4. LEXAPRO [Suspect]
     Indication: DEPRESSION
     Dosage: 10 MG
     Dates: start: 20120413, end: 20120413
  5. AMARYL [Concomitant]
     Dosage: 1 MG
     Route: 048
  6. RHUBARB [Concomitant]
     Dosage: 0.5 G
     Route: 048
  7. MIGLITOL [Concomitant]
     Dosage: 150 MG
     Route: 048
  8. CEFAZOLIN SODIUM [Concomitant]
     Dosage: 3 G
     Route: 048
  9. ACTOS [Concomitant]
     Dosage: 15 MG
     Route: 048

REACTIONS (4)
  - ENTEROCOLITIS [None]
  - POLLAKIURIA [None]
  - NAUSEA [None]
  - ABDOMINAL DISTENSION [None]
